FAERS Safety Report 12521884 (Version 2)
Quarter: 2016Q3

REPORT INFORMATION
  Report Type: Report from Study
  Country: US (occurrence: US)
  Receive Date: 20160701
  Receipt Date: 20160912
  Transmission Date: 20161109
  Serious: Yes (Hospitalization)
  Sender: FDA-Public Use
  Company Number: US-EXELIXIS-CABO-16006588

PATIENT
  Age: 58 Year
  Sex: Male

DRUGS (1)
  1. COMETRIQ [Suspect]
     Active Substance: CABOZANTINIB S-MALATE
     Indication: RENAL CANCER
     Dosage: 60 MG, QD
     Route: 048
     Dates: start: 20160428, end: 201606

REACTIONS (4)
  - Drug intolerance [Unknown]
  - Hypovolaemic shock [Unknown]
  - Septic shock [Unknown]
  - Off label use [Unknown]

NARRATIVE: CASE EVENT DATE: 20160620
